FAERS Safety Report 6502191-5 (Version None)
Quarter: 2009Q4

REPORT INFORMATION
  Report Type: 
  Country: None (occurrence: None)
  Receive Date: 20091216
  Receipt Date: 20091102
  Transmission Date: 20100525
  Serious: No
  Sender: FDA-Public Use
  Company Number: US-ABBOTT-09P-163-0597985-00

PATIENT
  Sex: Male

DRUGS (5)
  1. TRILIPIX [Suspect]
     Indication: BLOOD TRIGLYCERIDES INCREASED
     Dosage: LOW DOSE, 1 IN 1 D
     Dates: start: 20090701, end: 20090901
  2. TRILIPIX [Suspect]
     Indication: HIGH DENSITY LIPOPROTEIN DECREASED
     Dosage: INCREASED
     Dates: start: 20090901, end: 20091029
  3. UNKNOWN STATIN [Suspect]
     Indication: DRUG USE FOR UNKNOWN INDICATION
     Dates: start: 20090601
  4. ATENOLOL [Concomitant]
     Indication: PROPHYLAXIS
  5. ATENOLOL [Concomitant]
     Indication: HYPERTENSION

REACTIONS (6)
  - BLOOD TRIGLYCERIDES INCREASED [None]
  - GILBERT'S SYNDROME [None]
  - HIGH DENSITY LIPOPROTEIN DECREASED [None]
  - INSOMNIA [None]
  - LOW DENSITY LIPOPROTEIN INCREASED [None]
  - MYALGIA [None]
